FAERS Safety Report 15897406 (Version 1)
Quarter: 2019Q1

REPORT INFORMATION
  Report Type: Spontaneous
  Country: DE (occurrence: DE)
  Receive Date: 20190131
  Receipt Date: 20190131
  Transmission Date: 20190417
  Serious: Yes (Other)
  Sender: FDA-Public Use
  Company Number: PHHY2018DE188075

PATIENT
  Age: 39 Year
  Sex: Female

DRUGS (1)
  1. INTERFERON BETA-1B [Suspect]
     Active Substance: INTERFERON BETA-1B
     Indication: MULTIPLE SCLEROSIS
     Dosage: 250 ?G, QOD
     Route: 058
     Dates: start: 20180829

REACTIONS (13)
  - Fatigue [Not Recovered/Not Resolved]
  - Vitamin D deficiency [Unknown]
  - Injection site induration [Recovering/Resolving]
  - Injection site pain [Recovering/Resolving]
  - Pain [Not Recovered/Not Resolved]
  - Infection [Not Recovered/Not Resolved]
  - Urinary tract infection bacterial [Recovered/Resolved]
  - Injection site erythema [Recovering/Resolving]
  - Headache [Not Recovered/Not Resolved]
  - Listless [Not Recovered/Not Resolved]
  - Gastritis [Recovered/Resolved]
  - Influenza like illness [Recovering/Resolving]
  - Oropharyngeal pain [Not Recovered/Not Resolved]

NARRATIVE: CASE EVENT DATE: 20180829
